FAERS Safety Report 5627931-9 (Version None)
Quarter: 2008Q1

REPORT INFORMATION
  Report Type: 
  Country: None (occurrence: None)
  Receive Date: 20080215
  Receipt Date: 20080204
  Transmission Date: 20080703
  Serious: Yes (Hospitalization)
  Sender: FDA-Public Use
  Company Number: US-JNJFOC-20071006018

PATIENT
  Sex: Female
  Weight: 68.04 kg

DRUGS (4)
  1. TOPAMAX [Suspect]
     Indication: MIGRAINE PROPHYLAXIS
     Route: 048
  2. LEXAPRO [Concomitant]
     Indication: ANXIETY
     Route: 048
  3. PROTONIX [Concomitant]
     Indication: GASTRIC ULCER
     Route: 048
  4. YASMIN [Concomitant]
     Indication: CONTRACEPTION

REACTIONS (4)
  - BLINDNESS [None]
  - GLAUCOMA [None]
  - VISION BLURRED [None]
  - VISUAL ACUITY REDUCED [None]
